FAERS Safety Report 16550180 (Version 1)
Quarter: 2019Q3

REPORT INFORMATION
  Report Type: Spontaneous
  Country: US (occurrence: US)
  Receive Date: 20190709
  Receipt Date: 20190709
  Transmission Date: 20191004
  Serious: Yes (Hospitalization)
  Sender: FDA-Public Use
  Company Number: None

PATIENT
  Age: 55 Year
  Sex: Female
  Weight: 65.3 kg

DRUGS (1)
  1. ETOPOSIDE 5 ML VIAL [Suspect]
     Active Substance: ETOPOSIDE
     Indication: SMALL CELL LUNG CANCER
     Dosage: ?          OTHER FREQUENCY:DAILY X3 DAYS Q3W;?
     Route: 042
     Dates: start: 20190614, end: 20190708

REACTIONS (4)
  - Dizziness [None]
  - Infusion related reaction [None]
  - Dyspnoea [None]
  - Back pain [None]

NARRATIVE: CASE EVENT DATE: 20190708
